FAERS Safety Report 8230752-4 (Version None)
Quarter: 2012Q1

REPORT INFORMATION
  Report Type: 
  Country: None (occurrence: None)
  Receive Date: 20120323
  Receipt Date: 20120322
  Transmission Date: 20120608
  Serious: Yes (Hospitalization)
  Sender: FDA-Public Use
  Company Number: US-ROXANE LABORATORIES, INC.-2011-RO-00802RO

PATIENT
  Sex: Female
  Weight: 43 kg

DRUGS (7)
  1. INDERAL [Concomitant]
  2. FLECAINIDE ACETATE [Suspect]
     Indication: ATRIAL FIBRILLATION
     Dosage: 300 MG
     Route: 048
     Dates: start: 20080424, end: 20080424
  3. LOPRESSOR [Concomitant]
     Dosage: 100 MG
     Route: 048
  4. COZAAR [Concomitant]
     Dosage: 50 MG
     Route: 048
  5. DILTIAZEM HCL [Concomitant]
     Indication: ATRIAL FIBRILLATION
  6. RYTHMOL [Concomitant]
     Indication: ARRHYTHMIA
     Dosage: 450 MG
     Route: 048
     Dates: start: 20091001
  7. MAXZIDE [Concomitant]
     Route: 048

REACTIONS (4)
  - PNEUMONIA ASPIRATION [None]
  - OVERDOSE [None]
  - ATRIOVENTRICULAR BLOCK COMPLETE [None]
  - ASPIRATION [None]
